FAERS Safety Report 7403587-X (Version None)
Quarter: 2011Q1

REPORT INFORMATION
  Report Type: 
  Country: None (occurrence: None)
  Receive Date: 20110301
  Receipt Date: 20100126
  Transmission Date: 20110831
  Serious: Yes (Other)
  Sender: FDA-Public Use
  Company Number: US-JNJFOC-20100107518

PATIENT
  Age: 61 Year
  Sex: Male
  Weight: 83.9154 kg

DRUGS (1)
  1. MOTRIN IB [Suspect]
     Indication: MYALGIA
     Dosage: 200 MG, EVERY 4-6 HOURS AS NEEDED
     Dates: start: 20100110, end: 20100113

REACTIONS (5)
  - HAEMATOCHEZIA [None]
  - PRODUCT QUALITY ISSUE [None]
  - DIARRHOEA [None]
  - FLATULENCE [None]
  - ABDOMINAL DISTENSION [None]
